FAERS Safety Report 5121734-X (Version None)
Quarter: 2006Q4

REPORT INFORMATION
  Report Type: 
  Country: None (occurrence: None)
  Receive Date: 20061006
  Receipt Date: 20060605
  Transmission Date: 20070319
  Serious: Yes (Death, Life-Threatening, Hospitalization)
  Sender: FDA-Public Use
  Company Number: US-ROCHE-450783

PATIENT
  Age: 8 Year
  Sex: Female
  Weight: 24 kg

DRUGS (5)
  1. TAMIFLU [Suspect]
     Indication: DRUG USE FOR UNKNOWN INDICATION
     Route: 048
     Dates: start: 20020406, end: 20020407
  2. CHILDREN'S MOTRIN [Suspect]
     Dosage: DRUG REPORTED AS CHILDREN'S MOTRIN BERRY ORAL SUSPENSION.
     Route: 048
     Dates: start: 20020406, end: 20060409
  3. BENADRYL [Concomitant]
  4. KLONOPIN [Concomitant]
  5. AMBIEN [Concomitant]

REACTIONS (5)
  - ANXIETY [None]
  - DEATH [None]
  - DEPRESSION [None]
  - STEVENS-JOHNSON SYNDROME [None]
  - TOXIC EPIDERMAL NECROLYSIS [None]
